FAERS Safety Report 6784298-0 (Version None)
Quarter: 2010Q2

REPORT INFORMATION
  Report Type: 
  Country: None (occurrence: None)
  Receive Date: 20100622
  Receipt Date: 20100614
  Transmission Date: 20101027
  Serious: Yes (Hospitalization)
  Sender: FDA-Public Use
  Company Number: GXKR2010GB06563

PATIENT
  Age: 48 Year
  Sex: Female

DRUGS (2)
  1. PAROXETINE (NGX) [Suspect]
     Indication: DEPRESSION
     Dosage: 10 MG/DAY
     Route: 065
  2. PAROXETINE (NGX) [Suspect]
     Indication: OBSESSIVE-COMPULSIVE DISORDER

REACTIONS (4)
  - BRUGADA SYNDROME [None]
  - ELECTROCARDIOGRAM ST SEGMENT ELEVATION [None]
  - LOSS OF CONSCIOUSNESS [None]
  - SYNCOPE [None]
